FAERS Safety Report 8583670-6 (Version None)
Quarter: 2012Q3

REPORT INFORMATION
  Report Type: 
  Country: None (occurrence: None)
  Receive Date: 20120809
  Receipt Date: 20120709
  Transmission Date: 20120928
  Serious: Yes (Hospitalization, Other)
  Sender: FDA-Public Use
  Company Number: US-009507513-1207USA003961

PATIENT

DRUGS (20)
  1. DESFLURANE [Concomitant]
     Dosage: 2.1 TO 3 PERCENT
  2. ATROPINE [Concomitant]
     Indication: CARDIAC ARREST
  3. MEROPENEM [Concomitant]
     Indication: WHITE BLOOD CELL COUNT DECREASED
  4. AMIODARONE HCL [Concomitant]
     Dosage: 150 MG, UNK
     Route: 040
  5. AMIODARONE HCL [Concomitant]
     Dosage: 750 MG, INFUSION
     Route: 042
  6. INSULIN [Concomitant]
     Indication: BLOOD GLUCOSE ABNORMAL
  7. ZEMURON [Suspect]
     Indication: RESPIRATION ABNORMAL
     Dosage: 8 MICROGRAM PER KILOGRAM PER MINUTE
     Route: 042
  8. MEROPENEM [Concomitant]
     Indication: PYREXIA
  9. EPINEPHRINE [Concomitant]
     Indication: CARDIAC ARREST
  10. TIGECYCLINE [Concomitant]
     Dosage: 100 MG, QD
     Route: 042
  11. ZEMURON [Suspect]
     Dosage: 50 MG, 2 BOLUS DOSE
  12. NOREPINEPHRINE [Concomitant]
     Indication: MEAN ARTERIAL PRESSURE
     Dosage: CONTINOUS INFUSION
     Route: 042
  13. LORAZEPAM [Concomitant]
     Dosage: 2 MILLIGRAM PER HOUR
     Route: 042
  14. ALBUTEROL SULFATE [Concomitant]
     Dosage: NEBULIZATION
  15. SODIUM CHLORIDE [Concomitant]
     Indication: FLUID REPLACEMENT
     Dosage: 0.9 %, CONTINOUS INFUSION
     Route: 042
  16. FENTANYL [Concomitant]
     Dosage: CONTINOUS INFUSION
     Route: 042
  17. PANTOPRAZOLE [Concomitant]
     Dosage: 40 MG, QD
     Route: 042
  18. MEROPENEM [Concomitant]
     Indication: SEPSIS
     Dosage: 50 MG, Q8H
     Route: 042
  19. ACETYLCYSTEINE [Concomitant]
     Dosage: 20 %, NEBULIZATION
  20. VASOPRESSIN [Concomitant]
     Dosage: 0.03 UNIT PER MINUTE
     Route: 042

REACTIONS (1)
  - HYPERTHERMIA MALIGNANT [None]
